FAERS Safety Report 4866612-6 (Version None)
Quarter: 2005Q4

REPORT INFORMATION
  Report Type: 
  Country: None (occurrence: None)
  Receive Date: 20051221
  Receipt Date: 20051212
  Transmission Date: 20060501
  Serious: Yes (Disabling, Other)
  Sender: FDA-Public Use
  Company Number: 2005097839

PATIENT
  Age: 69 Year
  Sex: Male

DRUGS (1)
  1. VIAGRA [Suspect]
     Indication: ILL-DEFINED DISORDER
     Dates: start: 19990101

REACTIONS (13)
  - CARDIAC MURMUR [None]
  - CAROTID BRUIT [None]
  - FACTOR V LEIDEN MUTATION [None]
  - INTERNATIONAL NORMALISED RATIO DECREASED [None]
  - LABORATORY TEST ABNORMAL [None]
  - NORMOCHROMIC NORMOCYTIC ANAEMIA [None]
  - OPTIC DISC HAEMORRHAGE [None]
  - OPTIC NEURITIS [None]
  - RETINAL DISORDER [None]
  - RETINAL HAEMORRHAGE [None]
  - RETINAL VEIN OCCLUSION [None]
  - VISUAL ACUITY REDUCED [None]
  - WHITE BLOOD CELL COUNT DECREASED [None]
